FAERS Safety Report 20438092 (Version 2)
Quarter: 2025Q2

REPORT INFORMATION
  Report Type: Spontaneous
  Country: US (occurrence: US)
  Receive Date: 20220207
  Receipt Date: 20250611
  Transmission Date: 20250716
  Serious: Yes (Other)
  Sender: AUROBINDO
  Company Number: US-MYLANLABS-2022M1010497

PATIENT
  Age: 55 Year
  Sex: Female

DRUGS (16)
  1. CLONAZEPAM [Suspect]
     Active Substance: CLONAZEPAM
     Indication: Glycogen storage disease type II
     Route: 065
  2. CLONAZEPAM [Suspect]
     Active Substance: CLONAZEPAM
     Indication: Pain management
  3. TIZANIDINE [Suspect]
     Active Substance: TIZANIDINE
     Indication: Glycogen storage disease type II
     Route: 065
  4. TIZANIDINE [Suspect]
     Active Substance: TIZANIDINE
     Indication: Pain management
  5. CYCLOBENZAPRINE [Suspect]
     Active Substance: CYCLOBENZAPRINE
     Indication: Glycogen storage disease type II
     Route: 065
  6. CYCLOBENZAPRINE [Suspect]
     Active Substance: CYCLOBENZAPRINE
     Indication: Pain management
  7. GABAPENTIN [Suspect]
     Active Substance: GABAPENTIN
     Indication: Glycogen storage disease type II
     Route: 065
  8. GABAPENTIN [Suspect]
     Active Substance: GABAPENTIN
     Indication: Pain management
  9. IBUPROFEN [Suspect]
     Active Substance: IBUPROFEN
     Indication: Glycogen storage disease type II
     Route: 065
  10. IBUPROFEN [Suspect]
     Active Substance: IBUPROFEN
     Indication: Pain management
  11. OXYCODONE [Suspect]
     Active Substance: OXYCODONE
     Indication: Glycogen storage disease type II
     Route: 065
  12. OXYCODONE [Suspect]
     Active Substance: OXYCODONE
     Indication: Pain management
  13. TRAMADOL [Suspect]
     Active Substance: TRAMADOL
     Indication: Glycogen storage disease type II
     Route: 065
  14. TRAMADOL [Suspect]
     Active Substance: TRAMADOL
     Indication: Pain management
  15. KETOROLAC [Suspect]
     Active Substance: KETOROLAC TROMETHAMINE
     Indication: Glycogen storage disease type II
     Route: 065
  16. KETOROLAC [Suspect]
     Active Substance: KETOROLAC TROMETHAMINE
     Indication: Pain management

REACTIONS (2)
  - Drug ineffective [Unknown]
  - Off label use [Unknown]
